FAERS Safety Report 6209850-2 (Version None)
Quarter: 2009Q2

REPORT INFORMATION
  Report Type: 
  Country: None (occurrence: None)
  Receive Date: 20090601
  Receipt Date: 20090527
  Transmission Date: 20091009
  Serious: Yes (Hospitalization, Other)
  Sender: FDA-Public Use
  Company Number: US-JNJFOC-20090502926

PATIENT
  Sex: Female
  Weight: 48.99 kg

DRUGS (5)
  1. DURAGESIC-100 [Suspect]
     Dosage: 50 UG/HR PATCH + 100 UG/HR PATCH
     Route: 062
  2. DURAGESIC-100 [Suspect]
     Route: 062
  3. DURAGESIC-100 [Suspect]
     Indication: BACK PAIN
     Route: 062
  4. OXYCONTIN [Concomitant]
     Indication: BREAKTHROUGH PAIN
     Dosage: AS NEEDED
     Route: 048
  5. KLONOPIN [Concomitant]
     Indication: ANXIETY
     Route: 048

REACTIONS (9)
  - ABDOMINAL PAIN [None]
  - APPLICATION SITE BURN [None]
  - APPLICATION SITE EROSION [None]
  - DEPRESSION [None]
  - HERNIA [None]
  - INAPPROPRIATE SCHEDULE OF DRUG ADMINISTRATION [None]
  - INTESTINAL OBSTRUCTION [None]
  - WEIGHT DECREASED [None]
  - WRONG TECHNIQUE IN DRUG USAGE PROCESS [None]
